FAERS Safety Report 10177356 (Version 1)
Quarter: 2014Q2

REPORT INFORMATION
  Report Type: Spontaneous
  Country: JP (occurrence: JP)
  Receive Date: 20140516
  Receipt Date: 20140516
  Transmission Date: 20141212
  Serious: Yes (Other)
  Sender: FDA-Public Use
  Company Number: JP-BAYER-2014-068334

PATIENT
  Age: 76 Year
  Sex: Male

DRUGS (4)
  1. ACETYLSALICYLIC ACID({=100 MG) [Suspect]
     Indication: CAROTID ARTERY STENOSIS
     Dosage: 100 MG, DAILY
     Route: 048
  2. ACETYLSALICYLIC ACID({=100 MG) [Interacting]
     Indication: ANTIPLATELET THERAPY
  3. CILOSTAZOL [Interacting]
     Indication: ANTIPLATELET THERAPY
     Dosage: 200 MG, DAILY
     Route: 048
  4. CILOSTAZOL [Interacting]
     Indication: ANTIPLATELET THERAPY

REACTIONS (3)
  - Subcutaneous haematoma [Recovered/Resolved]
  - Labelled drug-drug interaction medication error [None]
  - Arteriovenous fistula [None]
